FAERS Safety Report 4971572-3 (Version None)
Quarter: 2006Q2

REPORT INFORMATION
  Report Type: 
  Country: None (occurrence: None)
  Receive Date: 20060406
  Receipt Date: 20060322
  Transmission Date: 20061013
  Serious: Yes (Hospitalization)
  Sender: FDA-Public Use
  Company Number: DE200603002767

PATIENT
  Age: 48 Year
  Sex: Male

DRUGS (2)
  1. FLUOXETINE HYDROCHLORIDE [Suspect]
     Indication: DEPRESSION
     Dosage: 20 MG, DAILY (1/D), ORAL; SEE IMAGE
     Route: 048
     Dates: start: 20040209
  2. GABAPENTIN [Concomitant]

REACTIONS (3)
  - DEMYELINATING POLYNEUROPATHY [None]
  - NERVE ROOT LESION [None]
  - POLYNEUROPATHY [None]
